FAERS Safety Report 8280840-1 (Version None)
Quarter: 2012Q2

REPORT INFORMATION
  Report Type: 
  Country: None (occurrence: None)
  Receive Date: 20120412
  Receipt Date: 20120404
  Transmission Date: 20120825
  Serious: Yes (Death)
  Sender: FDA-Public Use
  Company Number: CA-ABBOTT-12P-028-0922215-00

PATIENT
  Sex: Male
  Weight: 80.812 kg

DRUGS (1)
  1. LUPRON DEPOT [Suspect]
     Indication: PROSTATE CANCER
     Dates: start: 20111217, end: 20111217

REACTIONS (1)
  - DEATH [None]
